FAERS Safety Report 8159413-7 (Version None)
Quarter: 2012Q1

REPORT INFORMATION
  Report Type: 
  Country: None (occurrence: None)
  Receive Date: 20120223
  Receipt Date: 20111019
  Transmission Date: 20120608
  Serious: Yes (Other)
  Sender: FDA-Public Use
  Company Number: US-BAYER-2012-017037

PATIENT
  Age: 29 Year
  Sex: Female

DRUGS (2)
  1. BETASERON [Suspect]
     Indication: RELAPSING-REMITTING MULTIPLE SCLEROSIS
     Dosage: 8 MIU, QOD
     Route: 058
     Dates: start: 20110114
  2. CYMBALTA [Concomitant]
     Indication: MUSCLE SPASMS

REACTIONS (3)
  - MUSCLE SPASMS [None]
  - BLOOD IRON DECREASED [None]
  - SOMNOLENCE [None]
